FAERS Safety Report 7385165-4 (Version None)
Quarter: 2011Q1

REPORT INFORMATION
  Report Type: 
  Country: None (occurrence: None)
  Receive Date: 20110330
  Receipt Date: 20110322
  Transmission Date: 20110831
  Serious: Yes (Other)
  Sender: FDA-Public Use
  Company Number: NL-ABBOTT-11P-114-0713777-00

PATIENT
  Sex: Female
  Weight: 90 kg

DRUGS (9)
  1. DIFLONAC NATRIUM [Concomitant]
     Indication: ENDOMETRIOSIS
     Route: 048
     Dates: start: 20100901
  2. LUCRIN DEPOT 11.25 MG [Suspect]
     Indication: ENDOMETRIOSIS
     Route: 058
     Dates: start: 20110320
  3. NAPROXEN [Concomitant]
     Indication: ENDOMETRIOSIS
     Route: 048
  4. OMEPRAZOLE [Concomitant]
     Indication: GASTRIC DISORDER
     Route: 048
  5. TRAMADOL [Concomitant]
     Indication: ENDOMETRIOSIS
     Route: 048
     Dates: start: 20101001
  6. LIVIAL [Concomitant]
     Indication: HOT FLUSH
  7. LUCRIN 3.75MG [Suspect]
     Indication: ENDOMETRIOSIS
     Route: 058
     Dates: start: 20101122, end: 20110201
  8. LIVIAL [Concomitant]
     Indication: PROPHYLAXIS
     Route: 048
     Dates: start: 20110201
  9. OMEPRAZOLE [Concomitant]
     Indication: PROPHYLAXIS

REACTIONS (4)
  - ACNE [None]
  - RASH [None]
  - SKIN DISORDER [None]
  - RENAL CYST [None]
